FAERS Safety Report 7797277-1 (Version None)
Quarter: 2011Q4

REPORT INFORMATION
  Report Type: 
  Country: None (occurrence: None)
  Receive Date: 20111005
  Receipt Date: 20110923
  Transmission Date: 20120403
  Serious: Yes (Other)
  Sender: FDA-Public Use
  Company Number: US-BAYER-201030751NA

PATIENT
  Age: 35 Year
  Sex: Female
  Weight: 99.773 kg

DRUGS (1)
  1. YASMIN [Suspect]
     Indication: MENSTRUAL CYCLE MANAGEMENT
     Dosage: UNK UNK, UNK
     Route: 048
     Dates: start: 20020930, end: 20050919

REACTIONS (4)
  - VOMITING [None]
  - CHOLECYSTITIS ACUTE [None]
  - NAUSEA [None]
  - ABDOMINAL PAIN UPPER [None]
